FAERS Safety Report 7841847-9 (Version None)
Quarter: 2011Q4

REPORT INFORMATION
  Report Type: 
  Country: None (occurrence: None)
  Receive Date: 20111025
  Receipt Date: 20111017
  Transmission Date: 20120403
  Serious: Yes (Other)
  Sender: FDA-Public Use
  Company Number: US-JNJFOC-20111007301

PATIENT
  Age: 48 Year
  Sex: Male
  Weight: 96 kg

DRUGS (1)
  1. REMICADE [Suspect]
     Indication: PSORIASIS
     Route: 042
     Dates: start: 20110101

REACTIONS (3)
  - LUPUS-LIKE SYNDROME [None]
  - PLATELET COUNT DECREASED [None]
  - CONTUSION [None]
